FAERS Safety Report 24077218 (Version 1)
Quarter: 2024Q3

REPORT INFORMATION
  Report Type: Spontaneous
  Country: US (occurrence: US)
  Receive Date: 20240711
  Receipt Date: 20240711
  Transmission Date: 20241017
  Serious: No
  Sender: PIERRE FABRE MEDICAMENT
  Company Number: US-PFM-2023-04895

PATIENT
  Sex: Male
  Weight: 12 kg

DRUGS (1)
  1. HEMANGEOL [Suspect]
     Active Substance: PROPRANOLOL HYDROCHLORIDE
     Indication: Haemangioma
     Dosage: 4.8 ML, BID (2/DAY)
     Route: 048

REACTIONS (3)
  - Haemangioma [Recovering/Resolving]
  - Condition aggravated [Recovering/Resolving]
  - Intentional dose omission [Unknown]
